FAERS Safety Report 10291121 (Version 2)
Quarter: 2014Q3

REPORT INFORMATION
  Report Type: Spontaneous
  Country: US (occurrence: US)
  Receive Date: 20140710
  Receipt Date: 20140710
  Transmission Date: 20150326
  Serious: No
  Sender: FDA-Public Use
  Company Number: US-PURDUE-USA-2013-0104399

PATIENT
  Age: 48 Year
  Sex: Female

DRUGS (2)
  1. BUTRANS [Suspect]
     Active Substance: BUPRENORPHINE
     Dosage: 10 MCG/HR, WEEKLY
     Route: 062
     Dates: start: 201305, end: 201307
  2. BUTRANS [Suspect]
     Active Substance: BUPRENORPHINE
     Indication: PAIN
     Dosage: 5 MCG/HR, WEEKLY
     Route: 062
     Dates: start: 201303, end: 201305

REACTIONS (4)
  - Application site erythema [Unknown]
  - Application site pain [Unknown]
  - Application site burn [Recovered/Resolved]
  - Drug ineffective [Recovered/Resolved]

NARRATIVE: CASE EVENT DATE: 201303
